FAERS Safety Report 24228249 (Version 2)
Quarter: 2024Q3

REPORT INFORMATION
  Report Type: Spontaneous
  Country: US (occurrence: US)
  Receive Date: 20240820
  Receipt Date: 20240916
  Transmission Date: 20241016
  Serious: Yes (Other)
  Sender: BRISTOL MYERS SQUIBB
  Company Number: US-BRISTOL-MYERS SQUIBB COMPANY-2024-129623

PATIENT
  Age: 68 Year
  Sex: Female

DRUGS (1)
  1. LENALIDOMIDE [Suspect]
     Active Substance: LENALIDOMIDE
     Indication: Plasma cell myeloma
     Dosage: TAKE 1 CAPSULE BY MOUTH FOR 14 DAYS ON, THEN 7 DAYS OFF?TAKE 1 CAPSULE WHOLE BY MOUTH WITH WATER AT
     Route: 048

REACTIONS (3)
  - Skin cancer [Recovering/Resolving]
  - Off label use [Unknown]
  - Pruritus [Recovered/Resolved]
